FAERS Safety Report 11397883 (Version 3)
Quarter: 2015Q4

REPORT INFORMATION
  Report Type: Report from Study
  Country: US (occurrence: US)
  Receive Date: 20150819
  Receipt Date: 20151029
  Transmission Date: 20160304
  Serious: Yes (Hospitalization)
  Sender: FDA-Public Use
  Company Number: US-BAXALTA-2015BLT000997

PATIENT
  Age: 1 Year
  Sex: Male
  Weight: 12.3 kg

DRUGS (10)
  1. HEPARIN SODIUM. [Concomitant]
     Active Substance: HEPARIN SODIUM
     Indication: CATHETER MANAGEMENT
     Dosage: 10 IU/ML, AS NEEDED
     Route: 042
     Dates: start: 20141113
  2. VANCOMYCIN HYDROCHLORIDE. [Concomitant]
     Active Substance: VANCOMYCIN HYDROCHLORIDE
     Indication: CATHETER MANAGEMENT
     Dosage: 25 ?G/ML, AS NEEDED
     Route: 042
     Dates: start: 20141103
  3. PEGYLATED COAGULATION FACTOR VIII [Suspect]
     Active Substance: RURIOCTOCOG ALFA PEGOL
     Indication: FACTOR VIII DEFICIENCY
     Dosage: 762 IU, ONCE
     Route: 042
     Dates: start: 20150331, end: 20150331
  4. PARACETAMOL [Concomitant]
     Active Substance: ACETAMINOPHEN
     Indication: TEETHING
     Dosage: 160 MG, AS NEEDED
     Route: 048
     Dates: start: 20140801
  5. PEGYLATED COAGULATION FACTOR VIII [Suspect]
     Active Substance: RURIOCTOCOG ALFA PEGOL
     Indication: HAEMORRHAGE PROPHYLAXIS
     Dosage: 671 IU, ONCE
     Route: 042
     Dates: start: 20150804, end: 20150804
  6. PEGYLATED COAGULATION FACTOR VIII [Suspect]
     Active Substance: RURIOCTOCOG ALFA PEGOL
     Indication: DRUG LEVEL
     Dosage: UNK
     Dates: start: 20150804, end: 20150804
  7. ADVATE [Suspect]
     Active Substance: ANTIHEMOPHILIC FACTOR, HUMAN RECOMBINANT
     Indication: DRUG LEVEL
  8. ADVATE [Suspect]
     Active Substance: ANTIHEMOPHILIC FACTOR, HUMAN RECOMBINANT
     Indication: FACTOR VIII DEFICIENCY
     Dosage: 762 IU, ONCE
     Route: 042
     Dates: start: 20150317, end: 20150317
  9. LIDOCAINE, PRILOCAINE [Concomitant]
     Active Substance: LIDOCAINE\PRILOCAINE
     Indication: CATHETER SITE PAIN
     Dosage: 2.5 %, AS NEEDED
     Route: 061
     Dates: start: 20141111
  10. HEPARIN SODIUM. [Concomitant]
     Active Substance: HEPARIN SODIUM
     Indication: CATHETER MANAGEMENT
     Dosage: 100 IU/ML, AS NEEDED
     Route: 042
     Dates: start: 20141103

REACTIONS (2)
  - Febrile neutropenia [Recovered/Resolved]
  - Pancytopenia [Recovered/Resolved]

NARRATIVE: CASE EVENT DATE: 20150805
